FAERS Safety Report 9787821 (Version 1)
Quarter: 2013Q4

REPORT INFORMATION
  Report Type: Spontaneous
  Country: US (occurrence: US)
  Receive Date: 20131230
  Receipt Date: 20131230
  Transmission Date: 20140711
  Serious: No
  Sender: FDA-Public Use
  Company Number: US-PFIZER INC-2013367962

PATIENT
  Sex: 0

DRUGS (1)
  1. GENOTROPIN MQ [Suspect]
     Dosage: 0.4 MG, DAILY

REACTIONS (1)
  - Insulin-like growth factor decreased [Unknown]
